FAERS Safety Report 5209706-8 (Version None)
Quarter: 2007Q1

REPORT INFORMATION
  Report Type: 
  Country: None (occurrence: None)
  Receive Date: 20070116
  Receipt Date: 20070109
  Transmission Date: 20070707
  Serious: Yes (Life-Threatening, Hospitalization)
  Sender: FDA-Public Use
  Company Number: AU-BOEHRINGER INGELHEIM PHARMACEUTICALS, INC.-2007-BP-00350AU

PATIENT
  Sex: Female
  Weight: 70 kg

DRUGS (5)
  1. BUSCOPAN [Suspect]
     Indication: ABDOMINAL PAIN
     Dates: start: 20051228, end: 20051229
  2. DI-GESIC [Suspect]
     Route: 048
     Dates: end: 20051229
  3. LOMOTIL [Suspect]
     Indication: DIARRHOEA
     Route: 048
     Dates: start: 20051228, end: 20051229
  4. DIAZEPAM [Suspect]
     Indication: ANXIETY DISORDER
  5. ZOLOFT [Suspect]
     Indication: DEPRESSION
     Route: 048

REACTIONS (2)
  - DELUSIONAL DISORDER, PERSECUTORY TYPE [None]
  - PHYSICAL ASSAULT [None]
